FAERS Safety Report 7422523-3 (Version None)
Quarter: 2011Q2

REPORT INFORMATION
  Report Type: 
  Country: None (occurrence: None)
  Receive Date: 20110419
  Receipt Date: 20110411
  Transmission Date: 20111010
  Serious: No
  Sender: FDA-Public Use
  Company Number: US-BIOGENIDEC-2011BI013434

PATIENT
  Age: 43 Year
  Sex: Female

DRUGS (4)
  1. AVONEX [Suspect]
     Indication: MULTIPLE SCLEROSIS
     Route: 030
     Dates: start: 20030101, end: 20050101
  2. LAMOTRIGINE [Concomitant]
     Indication: NEURALGIA
  3. AVONEX [Suspect]
     Route: 030
     Dates: start: 20100901
  4. GABAPENTIN [Concomitant]
     Indication: NEURALGIA

REACTIONS (6)
  - INFLUENZA LIKE ILLNESS [None]
  - MUSCLE SPASMS [None]
  - NEURALGIA [None]
  - HOT FLUSH [None]
  - HEADACHE [None]
  - CHEST PAIN [None]
